FAERS Safety Report 9771066 (Version 2)
Quarter: 2014Q1

REPORT INFORMATION
  Report Type: Spontaneous
  Country: US (occurrence: US)
  Receive Date: 20131218
  Receipt Date: 20140127
  Transmission Date: 20141002
  Serious: Yes (Other)
  Sender: FDA-Public Use
  Company Number: US-PFIZER INC-2013361787

PATIENT
  Age: 55 Year
  Sex: Female
  Weight: 83.45 kg

DRUGS (5)
  1. LYRICA [Suspect]
     Indication: SCIATICA
     Dosage: 200 MG, 3X/DAY
     Route: 048
     Dates: start: 2005, end: 201306
  2. LYRICA [Suspect]
     Dosage: 200 MG, 2X/DAY
     Route: 048
     Dates: start: 201306, end: 2013
  3. LYRICA [Suspect]
     Dosage: 200 MG, 1X/DAY
     Route: 048
     Dates: start: 2013, end: 201311
  4. TRAMADOL [Concomitant]
     Indication: MIGRAINE
     Dosage: UNK
     Dates: end: 2013
  5. NUCYNTA [Concomitant]
     Dosage: UNK

REACTIONS (14)
  - Suicidal ideation [Recovered/Resolved]
  - Depression [Recovered/Resolved]
  - Weight decreased [Unknown]
  - Vision blurred [Recovering/Resolving]
  - Weight increased [Unknown]
  - Thinking abnormal [Unknown]
  - Pain [Unknown]
  - Psychomotor hyperactivity [Unknown]
  - Somnolence [Unknown]
  - Apathy [Unknown]
  - Anger [Unknown]
  - Nausea [Unknown]
  - Diarrhoea [Unknown]
  - Decreased appetite [Unknown]
